FAERS Safety Report 8806241 (Version 3)
Quarter: 2012Q4

REPORT INFORMATION
  Report Type: 
  Country: FR (occurrence: FR)
  Receive Date: 20120925
  Receipt Date: 20121120
  Transmission Date: 20130627
  Serious: Yes (Hospitalization)
  Sender: FDA-Public Use
  Company Number: CHPA2012FR020310

PATIENT
  Age: 80 Year
  Sex: Female

DRUGS (10)
  1. LAMISIL [Suspect]
     Indication: FUNGAL INFECTION
     Dosage: 1 DF, QD
     Route: 061
     Dates: start: 20120615, end: 20120719
  2. SECTRAL ^AKITA^ [Concomitant]
     Dosage: Unk, Unk
  3. CRESTOR [Concomitant]
     Dosage: Unk, Unk
  4. TRIATEC [Concomitant]
     Dosage: Unk, Unk
  5. AMLOR [Concomitant]
     Dosage: Unk, Unk
  6. KARDEGIC [Concomitant]
     Dosage: Unk, Unk
  7. DAFALGAN [Concomitant]
     Dosage: Unk, Unk
  8. NEURONTIN [Concomitant]
     Dosage: 100 mg, UNK
  9. PARIET [Concomitant]
     Dosage: 10 mg, UNK
  10. UVEDOSE [Concomitant]
     Dosage: Unk, Unk

REACTIONS (6)
  - Toxic skin eruption [Recovered/Resolved]
  - Rash maculo-papular [Recovered/Resolved]
  - Purpura [Recovered/Resolved]
  - Dermatitis exfoliative [Recovered/Resolved]
  - Thrombocytopenia [Recovered/Resolved]
  - Incorrect drug administration duration [Unknown]
